FAERS Safety Report 25853459 (Version 1)
Quarter: 2025Q3

REPORT INFORMATION
  Report Type: Spontaneous
  Country: JP (occurrence: JP)
  Receive Date: 20250926
  Receipt Date: 20250926
  Transmission Date: 20251021
  Serious: Yes (Other)
  Sender: ALEXION PHARMACEUTICALS
  Company Number: JP-ASTRAZENECA-202509JPN022437JP

PATIENT
  Age: 64 Year
  Sex: Male

DRUGS (2)
  1. ANDEXXA [Suspect]
     Active Substance: ANDEXANET ALFA
     Indication: Cerebral haemorrhage
     Route: 065
  2. EDOXABAN [Concomitant]
     Active Substance: EDOXABAN

REACTIONS (1)
  - Embolic cerebral infarction [Unknown]
